FAERS Safety Report 6012636-5 (Version None)
Quarter: 2008Q4

REPORT INFORMATION
  Report Type: 
  Country: None (occurrence: None)
  Receive Date: 20081218
  Receipt Date: 20081203
  Transmission Date: 20090506
  Serious: Yes (Life-Threatening, Hospitalization)
  Sender: FDA-Public Use
  Company Number: IT-GENENTECH-273305

PATIENT

DRUGS (7)
  1. RITUXIMAB [Suspect]
     Indication: B-CELL LYMPHOMA
     Dosage: 700 MG, Q3W
     Route: 042
     Dates: start: 20050622
  2. FLUDARABINE PHOSPHATE [Suspect]
     Indication: B-CELL LYMPHOMA
     Dosage: 40 MG, Q3W
     Route: 042
     Dates: start: 20050622
  3. MITOXANTRONE [Suspect]
     Indication: NON-HODGKIN'S LYMPHOMA
     Dosage: 15 MG, Q3W
     Route: 042
     Dates: start: 20050622
  4. NEBILOX [Concomitant]
     Indication: DRUG USE FOR UNKNOWN INDICATION
     Dosage: UNK
     Dates: start: 20080101
  5. ALLOPURINOL [Concomitant]
     Indication: DRUG USE FOR UNKNOWN INDICATION
     Dosage: UNK
     Dates: start: 20080101
  6. NADROPARIN CALCIUM [Concomitant]
     Indication: DRUG USE FOR UNKNOWN INDICATION
     Dosage: UNK
     Dates: start: 20081111
  7. OMEPRAZOLE [Concomitant]
     Indication: DRUG USE FOR UNKNOWN INDICATION
     Dosage: UNK
     Dates: start: 20081111

REACTIONS (1)
  - COLON CANCER [None]
